FAERS Safety Report 4777080-7 (Version None)
Quarter: 2005Q3

REPORT INFORMATION
  Report Type: 
  Country: None (occurrence: None)
  Receive Date: 20050923
  Receipt Date: 20050912
  Transmission Date: 20060218
  Serious: Yes (Hospitalization)
  Sender: FDA-Public Use
  Company Number: DE-JNJFOC-20050804575

PATIENT
  Sex: Female
  Weight: 81.5 kg

DRUGS (7)
  1. RISPERDAL QUICKLET [Suspect]
     Route: 048
  2. RISPERDAL QUICKLET [Suspect]
     Route: 048
  3. RISPERDAL CONSTA [Suspect]
     Route: 030
  4. RISPERDAL [Suspect]
     Route: 048
  5. RISPERDAL [Suspect]
     Dosage: 2-3ML
     Route: 048
  6. THYRONAJOD [Concomitant]
  7. THYRONAJOD [Concomitant]

REACTIONS (6)
  - BLOOD PROLACTIN INCREASED [None]
  - HYPERSENSITIVITY [None]
  - RASH [None]
  - SWELLING FACE [None]
  - URTICARIA [None]
  - URTICARIA GENERALISED [None]
